FAERS Safety Report 23655155 (Version 1)
Quarter: 2024Q1

REPORT INFORMATION
  Report Type: Spontaneous
  Country: US (occurrence: US)
  Receive Date: 20240320
  Receipt Date: 20240320
  Transmission Date: 20240410
  Serious: Yes (Death, Life-Threatening, Hospitalization, Other)
  Sender: FDA-Public Use
  Company Number: US-SANDOZ-SDZ2024US028292

PATIENT
  Age: 40 Year
  Sex: Female

DRUGS (6)
  1. DEXAMETHASONE [Suspect]
     Active Substance: DEXAMETHASONE
     Indication: Differentiation syndrome
     Dosage: UNK
     Route: 065
  2. MICAFUNGIN [Suspect]
     Active Substance: MICAFUNGIN SODIUM
     Indication: Differentiation syndrome
     Dosage: UNK
     Route: 065
  3. MEROPENEM [Suspect]
     Active Substance: MEROPENEM
     Indication: Differentiation syndrome
     Dosage: UNK
     Route: 065
  4. PIPERACILLIN AND TAZOBACTAM [Suspect]
     Active Substance: PIPERACILLIN SODIUM\TAZOBACTAM SODIUM
     Indication: Differentiation syndrome
     Dosage: UNK
     Route: 065
  5. VANCOMYCIN [Suspect]
     Active Substance: VANCOMYCIN
     Indication: Differentiation syndrome
     Dosage: UNK
     Route: 065
  6. VANCOMYCIN [Suspect]
     Active Substance: VANCOMYCIN
     Dosage: UNK
     Route: 065

REACTIONS (11)
  - Disseminated coccidioidomycosis [Fatal]
  - Cardiac arrest [Fatal]
  - Hypotension [Unknown]
  - Respiratory failure [Unknown]
  - Shock [Unknown]
  - Acute hepatic failure [Unknown]
  - Acute kidney injury [Unknown]
  - Disseminated intravascular coagulation [Unknown]
  - Differentiation syndrome [Unknown]
  - Condition aggravated [Unknown]
  - Product use in unapproved indication [Unknown]
